FAERS Safety Report 11393053 (Version 1)
Quarter: 2015Q3

REPORT INFORMATION
  Report Type: Spontaneous
  Country: US (occurrence: US)
  Receive Date: 20150818
  Receipt Date: 20150818
  Transmission Date: 20151125
  Serious: No
  Sender: FDA-Public Use
  Company Number: US-TEVA-586412USA

PATIENT
  Sex: Female
  Weight: 49.94 kg

DRUGS (1)
  1. CENESTIN [Suspect]
     Active Substance: ESTROGENS, CONJUGATED SYNTHETIC A
     Indication: MENOPAUSAL SYMPTOMS
     Route: 065

REACTIONS (1)
  - Therapeutic response unexpected [Unknown]
